FAERS Safety Report 16718489 (Version 1)
Quarter: 2019Q3

REPORT INFORMATION
  Report Type: Spontaneous
  Country: CA (occurrence: CA)
  Receive Date: 20190820
  Receipt Date: 20190820
  Transmission Date: 20191005
  Serious: Yes (Other)
  Sender: FDA-Public Use
  Company Number: CA-SA-2019SA217185

PATIENT
  Age: 48 Year
  Sex: Female

DRUGS (2)
  1. ARAVA [Suspect]
     Active Substance: LEFLUNOMIDE
     Indication: PRODUCT USED FOR UNKNOWN INDICATION
  2. XELJANZ XR [Interacting]
     Active Substance: TOFACITINIB CITRATE
     Indication: RHEUMATOID ARTHRITIS
     Dosage: 11.0 MG, TID
     Route: 048

REACTIONS (4)
  - Diarrhoea [Recovered/Resolved]
  - Immunosuppression [Recovered/Resolved]
  - Bowel movement irregularity [Recovered/Resolved]
  - Drug interaction [Unknown]
